FAERS Safety Report 8506126-5 (Version None)
Quarter: 2012Q3

REPORT INFORMATION
  Report Type: 
  Country: None (occurrence: None)
  Receive Date: 20120712
  Receipt Date: 20120703
  Transmission Date: 20120928
  Serious: Yes (Hospitalization)
  Sender: FDA-Public Use
  Company Number: US-ALEXION-A201201143

PATIENT
  Sex: Male
  Weight: 77.1 kg

DRUGS (14)
  1. VITAMIN B-12 [Concomitant]
     Indication: VITAMIN SUPPLEMENTATION
     Dosage: 1000 ?G, QD
     Route: 048
  2. VITAMIN B6 [Concomitant]
     Indication: VITAMIN SUPPLEMENTATION
     Dosage: 100 MG, QD
     Route: 048
  3. FOLIC ACID [Concomitant]
     Indication: VITAMIN SUPPLEMENTATION
     Dosage: 1000 ?G X3, QD
     Route: 048
  4. ADVAIR DISKUS 100/50 [Concomitant]
     Indication: DYSPNOEA
     Dosage: 250/50 BID
  5. AVASTIN [Suspect]
     Indication: MEDICATION ERROR
     Dosage: APPROXIMATELY 900 ML INFUSED
     Route: 042
     Dates: start: 20120607, end: 20120607
  6. METOPROLOL TARTRATE [Concomitant]
     Indication: HYPERTENSION
     Dosage: 50 MG, QD
     Route: 048
  7. SOLIRIS [Suspect]
     Dosage: UNK
     Route: 042
     Dates: start: 20110714, end: 20110101
  8. COMBIVENT [Concomitant]
     Dosage: UNK PRN
  9. LASIX [Concomitant]
     Indication: OEDEMA PERIPHERAL
     Dosage: 40 MG, QD
     Route: 048
  10. POTASSIUM CHLORIDE [Concomitant]
     Indication: SUPPLEMENTATION THERAPY
     Dosage: 20 MEQ, QD
     Route: 048
  11. ASPIRIN [Concomitant]
     Indication: HYPERTENSION
     Dosage: 325 MG, QD
     Route: 048
  12. RAMIPRIL [Concomitant]
     Indication: HYPERTENSION
     Dosage: 5 MG, QD
     Route: 048
  13. ALBUTEROL SULFATE AND IPRATROPIUM BROMIDE [Concomitant]
     Indication: DYSPNOEA
     Dosage: ALBUTEROL 3MG W/IPRATROPIUM 0.5MG QID
  14. SOLIRIS [Suspect]
     Indication: PAROXYSMAL NOCTURNAL HAEMOGLOBINURIA
     Dosage: 900 MG, Q2W
     Route: 042
     Dates: start: 20110101

REACTIONS (7)
  - HAEMOGLOBIN DECREASED [None]
  - MEDICATION ERROR [None]
  - CARDIAC FAILURE CONGESTIVE [None]
  - DYSPNOEA [None]
  - OEDEMA PERIPHERAL [None]
  - CHRONIC OBSTRUCTIVE PULMONARY DISEASE [None]
  - NIGHT SWEATS [None]
